FAERS Safety Report 7557951-9 (Version None)
Quarter: 2011Q2

REPORT INFORMATION
  Report Type: 
  Country: None (occurrence: None)
  Receive Date: 20110620
  Receipt Date: 20110615
  Transmission Date: 20111010
  Serious: Yes (Other)
  Sender: FDA-Public Use
  Company Number: D0071727A

PATIENT

DRUGS (2)
  1. REQUIP [Suspect]
     Dosage: 5MG PER DAY
     Route: 048
  2. UNSPECIFIED DRUG [Suspect]
     Route: 065

REACTIONS (1)
  - ELECTROCARDIOGRAM QT PROLONGED [None]
